FAERS Safety Report 6172955-9 (Version None)
Quarter: 2009Q2

REPORT INFORMATION
  Report Type: 
  Country: None (occurrence: None)
  Receive Date: 20090428
  Receipt Date: 20090420
  Transmission Date: 20091009
  Serious: Yes (Hospitalization)
  Sender: FDA-Public Use
  Company Number: FR-1168447

PATIENT
  Age: 70 Year
  Sex: Female

DRUGS (9)
  1. TOBRADEX [Suspect]
     Dosage: OPHTHALMIC
     Route: 047
     Dates: start: 20081014
  2. ADRENALINE RENAUDIN (EPINEPHRINE) [Concomitant]
  3. CARBOCAINE [Concomitant]
  4. NEOSYNEPHRINE (PHENYLEPHRINE HYDROCHOLRIDE) [Concomitant]
  5. PILOCARPINE HCL (PILOCARPINE HYDROCHLORIDE) [Concomitant]
  6. STERDEX (STER-DEX) [Concomitant]
  7. TETRACAINE HYDROCHLORIDE (TETRACAINE HYDROCHLORIDE) [Concomitant]
  8. TROPICAMIDE [Concomitant]
  9. OCUFEN [Concomitant]

REACTIONS (4)
  - ENDOPHTHALMITIS [None]
  - HYPOPYON [None]
  - UVEITIS [None]
  - VITRITIS [None]
